FAERS Safety Report 7389910-3 (Version None)
Quarter: 2011Q1

REPORT INFORMATION
  Report Type: 
  Country: None (occurrence: None)
  Receive Date: 20110325
  Receipt Date: 20110311
  Transmission Date: 20110831
  Serious: Yes (Life-Threatening)
  Sender: FDA-Public Use
  Company Number: 2011000783

PATIENT
  Age: 60 Year
  Sex: Female

DRUGS (3)
  1. ERLOTINIB (ERLOTINIB) (TABLET) (ERLOTINIB) [Suspect]
     Indication: OVARIAN CANCER
     Dosage: (75 MG, QD), ORAL
     Route: 048
     Dates: start: 20110103, end: 20110117
  2. GEMCITABINE [Suspect]
     Indication: OVARIAN CANCER
     Dosage: (750 MG/M2, DAYS 1, 8, 15, 22, 29, AND 43), INTRAVENOUS
     Route: 042
     Dates: start: 20110103, end: 20110110
  3. GDC-0449 (CAPSULES) [Suspect]
     Indication: OVARIAN CANCER
     Dosage: (150 MG, QD ) , ORAL
     Route: 048
     Dates: start: 20110103, end: 20110117

REACTIONS (1)
  - PLATELET COUNT DECREASED [None]
